FAERS Safety Report 7478755-1 (Version None)
Quarter: 2011Q2

REPORT INFORMATION
  Report Type: 
  Country: None (occurrence: None)
  Receive Date: 20110513
  Receipt Date: 20110429
  Transmission Date: 20111010
  Serious: Yes (Other)
  Sender: FDA-Public Use
  Company Number: JP-ROCHE-760887

PATIENT

DRUGS (6)
  1. PEGINTERFERON ALFA-2A [Suspect]
     Route: 065
  2. PEGINTERFERON ALFA-2A [Suspect]
     Route: 065
  3. INTERFERON ALFA [Suspect]
     Route: 065
  4. PEGINTERFERON ALFA-2B [Suspect]
     Route: 065
  5. INTERFERON BETA NOS [Suspect]
     Route: 065
  6. INTERFERON GAMMA-1A [Suspect]
     Route: 065

REACTIONS (2)
  - TYPE 1 DIABETES MELLITUS [None]
  - DIABETES MELLITUS [None]
